FAERS Safety Report 6311922-9 (Version None)
Quarter: 2009Q3

REPORT INFORMATION
  Report Type: 
  Country: None (occurrence: None)
  Receive Date: 20090817
  Receipt Date: 20090807
  Transmission Date: 20100115
  Serious: Yes (Hospitalization)
  Sender: FDA-Public Use
  Company Number: FR-BRISTOL-MYERS SQUIBB COMPANY-14741656

PATIENT
  Age: 80 Year
  Sex: Male

DRUGS (7)
  1. GLUCOPHAGE [Suspect]
     Route: 048
     Dates: start: 20060306
  2. PERSANTINE [Suspect]
     Dosage: 75MG COATED TABS
     Route: 048
     Dates: end: 20090306
  3. DAONIL [Suspect]
     Dates: start: 20090306
  4. PRETERAX [Concomitant]
     Route: 048
  5. KARDEGIC [Concomitant]
  6. ASASANTINE [Concomitant]
  7. ZYLORIC [Concomitant]

REACTIONS (1)
  - HEPATITIS [None]
